FAERS Safety Report 15061789 (Version 1)
Quarter: 2018Q2

REPORT INFORMATION
  Report Type: Report from Study
  Country: US (occurrence: US)
  Receive Date: 20180625
  Receipt Date: 20180625
  Transmission Date: 20180711
  Serious: Yes (Other)
  Sender: FDA-Public Use
  Company Number: US-ROCHE-1951611

PATIENT
  Sex: Male
  Weight: 25 kg

DRUGS (3)
  1. NUTROPIN AQ [Suspect]
     Active Substance: SOMATROPIN
     Indication: CHRONIC KIDNEY DISEASE
     Dosage: ONGOING:YES
     Route: 058
  2. NUTROPIN AQ [Suspect]
     Active Substance: SOMATROPIN
     Route: 058
  3. CYPROHEPTADINE. [Concomitant]
     Active Substance: CYPROHEPTADINE
     Route: 048

REACTIONS (20)
  - Hyperparathyroidism [Unknown]
  - Renal impairment [Unknown]
  - Haematocrit decreased [Unknown]
  - Hepatic enzyme increased [Unknown]
  - Growth retardation [Unknown]
  - Haemoglobin decreased [Unknown]
  - BK virus infection [Unknown]
  - Immunosuppression [Unknown]
  - Red blood cell count decreased [Unknown]
  - Growth failure [Unknown]
  - Proteinuria [Unknown]
  - Blood urea increased [Unknown]
  - Blood alkaline phosphatase decreased [Unknown]
  - Underweight [Unknown]
  - Hypertension [Unknown]
  - Renal failure [Unknown]
  - Renal tubular acidosis [Unknown]
  - Weight gain poor [Unknown]
  - Alanine aminotransferase increased [Unknown]
  - Blood creatinine increased [Unknown]
